FAERS Safety Report 12394060 (Version 2)
Quarter: 2016Q2

REPORT INFORMATION
  Report Type: Spontaneous
  Country: US (occurrence: US)
  Receive Date: 20160523
  Receipt Date: 20160524
  Transmission Date: 20160815
  Serious: Yes (Hospitalization)
  Sender: FDA-Public Use
  Company Number: US-BAYER-2016-093758

PATIENT
  Age: 52 Year
  Sex: Male
  Weight: 72.56 kg

DRUGS (1)
  1. ALEVE [Suspect]
     Active Substance: NAPROXEN SODIUM
     Indication: ARTHRALGIA
     Dosage: 1 DF, QD
     Route: 048
     Dates: start: 2013, end: 20160420

REACTIONS (4)
  - Gastrointestinal perforation [None]
  - Abdominal pain upper [None]
  - Gastric disorder [None]
  - Product use issue [None]

NARRATIVE: CASE EVENT DATE: 2014
